FAERS Safety Report 15994113 (Version 1)
Quarter: 2019Q1

REPORT INFORMATION
  Report Type: Spontaneous
  Country: US (occurrence: US)
  Receive Date: 20190128
  Receipt Date: 20190128
  Transmission Date: 20190418
  Serious: No
  Sender: FDA-Public Use
  Company Number: None

PATIENT
  Age: 73 Year
  Sex: Female

DRUGS (1)
  1. CAPECITABINE TAB 500MG [Suspect]
     Active Substance: CAPECITABINE
     Route: 048
     Dates: start: 20181220

REACTIONS (6)
  - Erythema [None]
  - Gait disturbance [None]
  - Sensitive skin [None]
  - Dysstasia [None]
  - Diarrhoea [None]
  - Skin irritation [None]

NARRATIVE: CASE EVENT DATE: 20190128
